FAERS Safety Report 5522946-3 (Version None)
Quarter: 2007Q4

REPORT INFORMATION
  Report Type: 
  Country: None (occurrence: None)
  Receive Date: 20071121
  Receipt Date: 20071115
  Transmission Date: 20080405
  Serious: Yes (Life-Threatening, Hospitalization)
  Sender: FDA-Public Use
  Company Number: DK-JNJFOC-20070806528

PATIENT
  Age: 61 Year
  Sex: Male
  Weight: 80 kg

DRUGS (4)
  1. REMICADE [Suspect]
     Indication: ANKYLOSING SPONDYLITIS
     Route: 042
  2. SALAZOPYRIN [Concomitant]
     Route: 048
  3. OLMETEC [Concomitant]
     Route: 048
  4. IBUPROFEN TABLETS [Concomitant]

REACTIONS (8)
  - BLOOD PRESSURE INCREASED [None]
  - BRONCHOSPASM [None]
  - CHEST DISCOMFORT [None]
  - CHILLS [None]
  - INFUSION RELATED REACTION [None]
  - MUSCLE SPASMS [None]
  - PYREXIA [None]
  - TACHYCARDIA [None]
